FAERS Safety Report 19165453 (Version 1)
Quarter: 2021Q2

REPORT INFORMATION
  Report Type: Spontaneous
  Country: NO (occurrence: NO)
  Receive Date: 20210421
  Receipt Date: 20210421
  Transmission Date: 20210717
  Serious: Yes (Life-Threatening)
  Sender: FDA-Public Use
  Company Number: NO-TEVA-2021-NO-1901577

PATIENT
  Age: 27 Year
  Sex: Female
  Weight: 59 kg

DRUGS (1)
  1. APOCILLIN TAB 660 MG [Suspect]
     Active Substance: PENICILLIN V POTASSIUM
     Indication: TONSILLITIS
     Dates: start: 200801, end: 200801

REACTIONS (5)
  - Peripheral swelling [Unknown]
  - Swelling face [Unknown]
  - Visual impairment [Unknown]
  - Anaphylactic shock [Recovered/Resolved]
  - Dyspnoea [Unknown]

NARRATIVE: CASE EVENT DATE: 200801
